FAERS Safety Report 21360359 (Version 2)
Quarter: 2022Q3

REPORT INFORMATION
  Report Type: Report from Study
  Country: CA (occurrence: CA)
  Receive Date: 20220921
  Receipt Date: 20220927
  Transmission Date: 20221027
  Serious: Yes (Hospitalization, Other)
  Sender: FDA-Public Use
  Company Number: CA-GLAXOSMITHKLINE-CA2022AMR133126

PATIENT

DRUGS (1)
  1. MEPOLIZUMAB [Suspect]
     Active Substance: MEPOLIZUMAB
     Indication: Asthma
     Dosage: 100 MG, Z (EVERY 4 WEEKS)
     Route: 058
     Dates: start: 20181213

REACTIONS (9)
  - Cardiac failure [Unknown]
  - Renal failure [Unknown]
  - Asthenia [Unknown]
  - Gait inability [Unknown]
  - Haemoglobin abnormal [Unknown]
  - Blood gases abnormal [Unknown]
  - Asthenia [Unknown]
  - Fatigue [Unknown]
  - Respiration abnormal [Unknown]

NARRATIVE: CASE EVENT DATE: 20220920
